FAERS Safety Report 4757119-5 (Version None)
Quarter: 2005Q3

REPORT INFORMATION
  Report Type: 
  Country: None (occurrence: None)
  Receive Date: 20050829
  Receipt Date: 20050816
  Transmission Date: 20060218
  Serious: Yes (Life-Threatening)
  Sender: FDA-Public Use
  Company Number: 2005116599

PATIENT
  Age: 86 Year
  Sex: Female

DRUGS (2)
  1. VFEND [Suspect]
     Indication: ILL-DEFINED DISORDER
     Dosage: 400 MG (2 IN 1 D), ORAL
     Route: 048
     Dates: start: 20050630, end: 20050711
  2. VERAPAMIL HYDROCHLORIDE TABELT (VERAPAMIL HYDROCHLORIDE) [Suspect]
     Indication: ILL-DEFINED DISORDER
     Dosage: 360 MG (3 IN 1 D), ORAL
     Route: 048
     Dates: start: 20050706, end: 20050711

REACTIONS (2)
  - HYPOGLYCAEMIA [None]
  - SHOCK [None]
